FAERS Safety Report 10014254 (Version 1)
Quarter: 2014Q1

REPORT INFORMATION
  Report Type: Spontaneous
  Country: US (occurrence: US)
  Receive Date: 20140317
  Receipt Date: 20140317
  Transmission Date: 20141002
  Serious: Yes (Other)
  Sender: FDA-Public Use
  Company Number: US-BEH-2014039903

PATIENT
  Sex: Female
  Weight: 54 kg

DRUGS (17)
  1. HIZENTRA [Suspect]
     Dosage: 2 GM 10 ML VIAL; 4 GM 10 ML VIAL
     Route: 058
  2. HIZENTRA [Suspect]
     Indication: IMMUNODEFICIENCY COMMON VARIABLE
     Route: 058
  3. LIDOCAINE [Concomitant]
  4. EPI PEN [Concomitant]
  5. AVELOX [Concomitant]
  6. PREDNISONE [Concomitant]
  7. ASTRAGALUS [Concomitant]
  8. LOSARTAN POTASSIUM [Concomitant]
  9. LIPITOR [Concomitant]
  10. ADVAIR [Concomitant]
  11. B COMPLEX [Concomitant]
  12. VITAMIN C [Concomitant]
  13. SELENIUM [Concomitant]
  14. COENZYME Q10 [Concomitant]
  15. PROAIR [Concomitant]
  16. CALCIUM-MAGNESIUM [Concomitant]
  17. LEVOTHYROXINE [Concomitant]

REACTIONS (4)
  - Drug ineffective [Unknown]
  - Nasal congestion [Unknown]
  - Cough [Unknown]
  - Infusion site urticaria [Unknown]
